FAERS Safety Report 12920951 (Version 2)
Quarter: 2017Q3

REPORT INFORMATION
  Report Type: Report from Study
  Country: US (occurrence: US)
  Receive Date: 20161107
  Receipt Date: 20170911
  Transmission Date: 20171127
  Serious: Yes (Hospitalization)
  Sender: FDA-Public Use
  Company Number: US-JNJFOC-20160827353

PATIENT
  Age: 85 Year
  Sex: Female

DRUGS (19)
  1. PREDNISONE. [Concomitant]
     Active Substance: PREDNISONE
  2. CENTRUM SILVER [Concomitant]
     Active Substance: MINERALS\VITAMINS
  3. LASIX [Concomitant]
     Active Substance: FUROSEMIDE
  4. CENTRUM FORTE [Concomitant]
  5. VITAMIN D3 [Concomitant]
     Active Substance: CHOLECALCIFEROL
  6. METAMUCIL [Concomitant]
     Active Substance: PLANTAGO SEED
  7. IMBRUVICA [Suspect]
     Active Substance: IBRUTINIB
     Indication: CHRONIC LYMPHOCYTIC LEUKAEMIA
     Route: 048
     Dates: start: 20160818
  8. FOLIC ACID. [Concomitant]
     Active Substance: FOLIC ACID
  9. CALCIUM [Concomitant]
     Active Substance: CALCIUM
  10. ZETIA [Concomitant]
     Active Substance: EZETIMIBE
  11. IMBRUVICA [Suspect]
     Active Substance: IBRUTINIB
     Indication: CHRONIC LYMPHOCYTIC LEUKAEMIA
     Route: 048
     Dates: start: 20161014
  12. VITAMIN C [Concomitant]
     Active Substance: ASCORBIC ACID
  13. BAYER ASPIRIN [Concomitant]
     Active Substance: ASPIRIN
  14. VITAMIN B [Concomitant]
     Active Substance: VITAMIN B
  15. ELIQUIS [Concomitant]
     Active Substance: APIXABAN
  16. TOPROL XL [Concomitant]
     Active Substance: METOPROLOL SUCCINATE
  17. CYANOCOBALAMIN. [Concomitant]
     Active Substance: CYANOCOBALAMIN
  18. MYLANTA [Concomitant]
     Active Substance: ALUMINUM HYDROXIDE\DIMETHICONE\MAGNESIUM HYDROXIDE
  19. BENICAR [Concomitant]
     Active Substance: OLMESARTAN MEDOXOMIL

REACTIONS (7)
  - Pleural effusion [Unknown]
  - Pneumonia [Recovered/Resolved]
  - Herpes zoster [Unknown]
  - Rhinorrhoea [Unknown]
  - Blister [Not Recovered/Not Resolved]
  - Abdominal discomfort [Recovered/Resolved]
  - Epistaxis [Recovered/Resolved]

NARRATIVE: CASE EVENT DATE: 20161020
